FAERS Safety Report 24325970 (Version 1)
Quarter: 2024Q3

REPORT INFORMATION
  Report Type: Report from Study
  Country: BR (occurrence: None)
  Receive Date: 20240917
  Receipt Date: 20240917
  Transmission Date: 20241016
  Serious: Yes (Hospitalization)
  Sender: ASTRAZENECA
  Company Number: 2024A210625

PATIENT
  Age: 67 Year
  Sex: Female

DRUGS (9)
  1. DAPAGLIFLOZIN [Suspect]
     Active Substance: DAPAGLIFLOZIN
     Indication: Arrhythmia
     Dosage: ONCE AFTER BREAKFAST
     Route: 048
     Dates: start: 20240806
  2. METOPROLOL SUCCINATE [Suspect]
     Active Substance: METOPROLOL SUCCINATE
     Route: 048
  3. ARA DOIS [Concomitant]
  4. AMIODARONE HYDROCHLORIDE [Concomitant]
     Active Substance: AMIODARONE HYDROCHLORIDE
  5. SPIRONOLACTONE [Concomitant]
     Active Substance: SPIRONOLACTONE
  6. LOSARTAN [Concomitant]
     Active Substance: LOSARTAN\LOSARTAN POTASSIUM
  7. RIVAROXABAN [Concomitant]
     Active Substance: RIVAROXABAN
  8. LORATADINE [Concomitant]
     Active Substance: LORATADINE
  9. ATORVASTATIN [Concomitant]
     Active Substance: ATORVASTATIN

REACTIONS (12)
  - Arrhythmia [Unknown]
  - Hypersensitivity [Recovering/Resolving]
  - Diarrhoea [Recovering/Resolving]
  - Constipation [Recovering/Resolving]
  - Smoke sensitivity [Recovering/Resolving]
  - Glucose tolerance impaired [Unknown]
  - Hypertension [Unknown]
  - Cough [Unknown]
  - Abdominal discomfort [Recovering/Resolving]
  - General physical health deterioration [Recovering/Resolving]
  - Off label use [Unknown]
  - Inability to afford medication [Unknown]

NARRATIVE: CASE EVENT DATE: 20240827
